FAERS Safety Report 25574706 (Version 1)
Quarter: 2025Q3

REPORT INFORMATION
  Report Type: Report from Study
  Country: BR (occurrence: BR)
  Receive Date: 20250718
  Receipt Date: 20250718
  Transmission Date: 20251021
  Serious: Yes (Other)
  Sender: TAKEDA
  Company Number: BR-TAKEDA-2025TUS063453

PATIENT
  Sex: Male

DRUGS (1)
  1. VEDOLIZUMAB [Suspect]
     Active Substance: VEDOLIZUMAB
     Indication: Colitis ulcerative

REACTIONS (12)
  - Colitis ulcerative [Unknown]
  - Depressed mood [Unknown]
  - Overweight [Unknown]
  - Social problem [Unknown]
  - Loss of personal independence in daily activities [Unknown]
  - Rectal tenesmus [Unknown]
  - Anger [Unknown]
  - Discouragement [Unknown]
  - Impaired work ability [Unknown]
  - Tension [Unknown]
  - Flatulence [Unknown]
  - Fatigue [Unknown]
